FAERS Safety Report 4933921-1 (Version None)
Quarter: 2006Q1

REPORT INFORMATION
  Report Type: 
  Country: None (occurrence: None)
  Receive Date: 20060301
  Receipt Date: 20060216
  Transmission Date: 20060701
  Serious: Yes (Hospitalization)
  Sender: FDA-Public Use
  Company Number: 2006024760

PATIENT
  Age: 86 Year
  Sex: Female

DRUGS (3)
  1. DETROL [Suspect]
     Indication: INCONTINENCE
  2. FLUOROURACIL [Suspect]
     Indication: SKIN CANCER
     Dosage: TOPICAL
     Route: 061
     Dates: start: 20051001, end: 20051015
  3. FOSAMAX [Suspect]
     Indication: OSTEOPOROSIS

REACTIONS (7)
  - BALANCE DISORDER [None]
  - DIZZINESS [None]
  - NAUSEA [None]
  - THERAPY REGIMEN CHANGED [None]
  - VERTIGO [None]
  - VISION BLURRED [None]
  - VOMITING [None]
